FAERS Safety Report 5131162-9 (Version None)
Quarter: 2006Q3

REPORT INFORMATION
  Report Type: 
  Country: None (occurrence: None)
  Receive Date: 20060830
  Receipt Date: 20050901
  Transmission Date: 20061208
  Serious: Yes (Hospitalization)
  Sender: FDA-Public Use
  Company Number: 200511729BWH

PATIENT
  Age: 73 Year
  Sex: Female
  Weight: 77.27 kg

DRUGS (36)
  1. TRASYLOL [Suspect]
     Indication: TRICUSPID VALVE REPLACEMENT
     Dosage: 1 ML, ONCE, INTRAVENOUS
     Route: 042
     Dates: start: 20050822
  2. COUMADIN [Concomitant]
  3. DIGITEK [Concomitant]
  4. FUROSEMIDE [Concomitant]
  5. GARLIC [Concomitant]
  6. GLUCOSAMINE [Concomitant]
  7. GLUCOTROL XL [Concomitant]
  8. LEVOXYL [Concomitant]
  9. MULTI-VITAMIN [Concomitant]
  10. POTASSIUM CHLORIDE [Concomitant]
  11. ZINC [Concomitant]
  12. FISH OIL [Concomitant]
  13. FLAX SEED OIL [Concomitant]
  14. VITAMIN B COMPLEX CAP [Concomitant]
  15. VITAMIN B6 [Concomitant]
  16. FOLIC ACID [Concomitant]
  17. DHEA [Concomitant]
  18. ASCORBIC ACID [Concomitant]
  19. VITAMIN E [Concomitant]
  20. Q GEL [Concomitant]
  21. LIDOCAINE [Concomitant]
  22. MIDAZOLAM [Concomitant]
  23. ETOMIDATE [Concomitant]
  24. DIPHENHYDRAMINE HCL [Concomitant]
  25. METHYLPRED SODIUM [Concomitant]
  26. HEPARIN SODIUM INJECTION [Concomitant]
  27. DOPAMINE HCL IN 5% DEXTROSE [Concomitant]
  28. PROPOFOL [Concomitant]
  29. FENTANYL [Concomitant]
  30. PEPCID [Concomitant]
  31. EPHEDRINE [Concomitant]
  32. ISOFLURANE [Concomitant]
  33. CEFAZOLIN [Concomitant]
  34. PANCURONIUM [Concomitant]
  35. GLUCOSE [Concomitant]
  36. SODIUM CHLORIDE [Concomitant]

REACTIONS (4)
  - ANAPHYLACTIC REACTION [None]
  - ERYTHEMA [None]
  - HYPOTENSION [None]
  - PULMONARY HYPERTENSION [None]
